FAERS Safety Report 4284304-1 (Version None)
Quarter: 2004Q1

REPORT INFORMATION
  Report Type: 
  Country: None (occurrence: None)
  Receive Date: 20040203
  Receipt Date: 20030411
  Transmission Date: 20041129
  Serious: Yes (Hospitalization, Disabling, Other)
  Sender: FDA-Public Use
  Company Number: WAES 0304USA01262

PATIENT
  Age: 78 Year
  Sex: Female
  Weight: 68 kg

DRUGS (5)
  1. ASPIRIN [Concomitant]
     Indication: PROPHYLAXIS
  2. LIPITOR [Concomitant]
  3. SYNTHROID [Concomitant]
  4. VIOXX [Suspect]
     Indication: ARTHRALGIA
     Route: 048
     Dates: start: 20000320, end: 20010801
  5. VIOXX [Suspect]
     Route: 048
     Dates: start: 20000320, end: 20010801

REACTIONS (20)
  - ANGINA PECTORIS [None]
  - AORTIC VALVE SCLEROSIS [None]
  - ATRIOVENTRICULAR BLOCK FIRST DEGREE [None]
  - CARDIAC DISORDER [None]
  - CARDIAC MURMUR [None]
  - CAROTID BRUIT [None]
  - CORONARY ARTERY DISEASE [None]
  - CORONARY ARTERY OCCLUSION [None]
  - CORONARY ARTERY THROMBOSIS [None]
  - DILATATION ATRIAL [None]
  - DYSPNOEA [None]
  - ELECTROCARDIOGRAM ST-T CHANGE [None]
  - GRAFT THROMBOSIS [None]
  - HYPERTENSION [None]
  - INJURY [None]
  - INNER EAR DISORDER [None]
  - MITRAL VALVE CALCIFICATION [None]
  - OEDEMA PERIPHERAL [None]
  - ROTATOR CUFF SYNDROME [None]
  - VENTRICULAR HYPERTROPHY [None]
